FAERS Safety Report 8949821 (Version 1)
Quarter: 2012Q4

REPORT INFORMATION
  Report Type: 
  Country: FR (occurrence: FR)
  Receive Date: 20121206
  Receipt Date: 20121206
  Transmission Date: 20130627
  Serious: Yes (Hospitalization)
  Sender: FDA-Public Use
  Company Number: FR-VERTEX PHARMACEUTICALS INC.-2012-025686

PATIENT
  Age: 62 Year
  Sex: Male

DRUGS (3)
  1. INCIVO [Suspect]
     Indication: CHRONIC HEPATITIS C
     Dosage: Dosage Form: Tablet
     Route: 048
     Dates: start: 20120521, end: 20120824
  2. COPEGUS [Suspect]
     Indication: CHRONIC HEPATITIS C
     Dosage: Dosage Form: Coated Tablet
     Route: 048
     Dates: start: 20120521
  3. PEGASYS [Concomitant]
     Indication: CHRONIC HEPATITIS C
     Dosage: Dosage Form: Unspecified
     Route: 065
     Dates: start: 20120521

REACTIONS (7)
  - Neutropenia [Not Recovered/Not Resolved]
  - Anaemia [Recovered/Resolved]
  - Rash [Recovered/Resolved]
  - Pruritus [Recovered/Resolved]
  - Thrombocytopenia [Not Recovered/Not Resolved]
  - Insomnia [Unknown]
  - Dyspnoea [Unknown]
